FAERS Safety Report 14914069 (Version 1)
Quarter: 2018Q2

REPORT INFORMATION
  Report Type: Spontaneous
  Country: IT (occurrence: IT)
  Receive Date: 20180518
  Receipt Date: 20180518
  Transmission Date: 20180711
  Serious: Yes (Death, Hospitalization, Other)
  Sender: FDA-Public Use
  Company Number: IT-009507513-1805ITA006943

PATIENT
  Age: 62 Year
  Sex: Male

DRUGS (4)
  1. LAROXYL [Suspect]
     Active Substance: AMITRIPTYLINE HYDROCHLORIDE
     Dosage: 60 DROPS
     Dates: start: 20180515
  2. KEYTRUDA [Suspect]
     Active Substance: PEMBROLIZUMAB
     Indication: LUNG CARCINOMA CELL TYPE UNSPECIFIED STAGE IV
     Dosage: UNK
     Dates: start: 20180501
  3. LAROXYL [Suspect]
     Active Substance: AMITRIPTYLINE HYDROCHLORIDE
     Dosage: 10 DROPS, DAILY
     Dates: start: 201805
  4. SOLDESAM [Suspect]
     Active Substance: DEXAMETHASONE
     Dosage: UNKNOWN
     Dates: start: 201805

REACTIONS (2)
  - Malaise [Fatal]
  - Death [Fatal]

NARRATIVE: CASE EVENT DATE: 201805
